FAERS Safety Report 7653737-5 (Version None)
Quarter: 2011Q3

REPORT INFORMATION
  Report Type: 
  Country: None (occurrence: None)
  Receive Date: 20110803
  Receipt Date: 20110728
  Transmission Date: 20111222
  Serious: Yes (Life-Threatening, Disabling)
  Sender: FDA-Public Use
  Company Number: US-GLAXOSMITHKLINE-A0930790A

PATIENT
  Age: 72 Year
  Sex: Female

DRUGS (9)
  1. VENTOLIN HFA [Concomitant]
  2. ALBUTEROL [Concomitant]
  3. METFORMIN HCL [Concomitant]
  4. ACTOS [Concomitant]
  5. ADVAIR DISKUS 100/50 [Suspect]
     Indication: PRODUCT USED FOR UNKNOWN INDICATION
     Route: 055
     Dates: start: 20050219
  6. ALLEGRA [Concomitant]
  7. SINGULAIR [Concomitant]
  8. GABAPENTIN [Concomitant]
  9. PREDNISONE [Concomitant]

REACTIONS (2)
  - THROAT TIGHTNESS [None]
  - PRODUCT QUALITY ISSUE [None]
